FAERS Safety Report 8316626-9 (Version None)
Quarter: 2012Q2

REPORT INFORMATION
  Report Type: 
  Country: None (occurrence: None)
  Receive Date: 20120427
  Receipt Date: 20120423
  Transmission Date: 20120825
  Serious: Yes (Hospitalization)
  Sender: FDA-Public Use
  Company Number: PHHY2012AU035481

PATIENT
  Sex: Female

DRUGS (2)
  1. INFLUENZA VACCINE [Concomitant]
     Dosage: UNK UKN, UNK
     Dates: start: 20120423
  2. ZOLEDRONOC ACID [Suspect]
     Dosage: 5 MG, UNK
     Route: 042
     Dates: start: 20110209

REACTIONS (1)
  - PNEUMONIA [None]
